FAERS Safety Report 22137541 (Version 3)
Quarter: 2023Q2

REPORT INFORMATION
  Report Type: Report from Study
  Country: DO (occurrence: DO)
  Receive Date: 20230325
  Receipt Date: 20230512
  Transmission Date: 20230721
  Serious: Yes (Hospitalization, Other)
  Sender: FDA-Public Use
  Company Number: DO-ABBVIE-4700544

PATIENT
  Sex: Female
  Weight: 68 kg

DRUGS (1)
  1. HUMIRA [Suspect]
     Active Substance: ADALIMUMAB
     Indication: Ankylosing spondylitis
     Dosage: FORM STRENGTH 40 MILLIGRAMS
     Route: 058
     Dates: start: 20150113, end: 20230216

REACTIONS (14)
  - Erysipelas [Recovering/Resolving]
  - Skin necrosis [Recovering/Resolving]
  - Purulent discharge [Recovering/Resolving]
  - Skin disorder [Recovering/Resolving]
  - Malaise [Recovering/Resolving]
  - Erythema [Recovering/Resolving]
  - Haemoglobin decreased [Recovering/Resolving]
  - Skin discolouration [Recovering/Resolving]
  - Pain in extremity [Recovering/Resolving]
  - Pain [Recovering/Resolving]
  - Thrombosis [Recovering/Resolving]
  - Pyrexia [Recovering/Resolving]
  - Oedema peripheral [Recovering/Resolving]
  - Hypoglycaemia [Recovering/Resolving]

NARRATIVE: CASE EVENT DATE: 20230101
